FAERS Safety Report 4439334-3 (Version None)
Quarter: 2004Q3

REPORT INFORMATION
  Report Type: 
  Country: None (occurrence: None)
  Receive Date: 20040831
  Receipt Date: 20040823
  Transmission Date: 20050211
  Serious: No
  Sender: FDA-Public Use
  Company Number: TPA2004A01034

PATIENT
  Age: 78 Year
  Sex: Female

DRUGS (9)
  1. ACTOS [Suspect]
     Dosage: SEE IMAGE
     Route: 048
     Dates: end: 20040804
  2. ACTOS [Suspect]
     Dosage: SEE IMAGE
     Route: 048
     Dates: start: 20040805, end: 20040823
  3. ACTOS [Suspect]
     Dosage: SEE IMAGE
     Route: 048
     Dates: start: 20040823
  4. COUMADIN [Concomitant]
  5. METFORMIN HCL [Concomitant]
  6. LEVOTHROID [Concomitant]
  7. CELEBREX [Concomitant]
  8. GLIPIZIDE ER (GLIPIZIDE) [Concomitant]
  9. LISINOPRIL [Concomitant]

REACTIONS (3)
  - BLOOD GLUCOSE INCREASED [None]
  - MEDICATION ERROR [None]
  - PHARMACEUTICAL PRODUCT COMPLAINT [None]
